FAERS Safety Report 7249166-9 (Version None)
Quarter: 2011Q1

REPORT INFORMATION
  Report Type: 
  Country: None (occurrence: None)
  Receive Date: 20110128
  Receipt Date: 20100910
  Transmission Date: 20110831
  Serious: Yes (Hospitalization, Other)
  Sender: FDA-Public Use
  Company Number: US-BAYER-200941658NA

PATIENT
  Sex: Female
  Weight: 63.636 kg

DRUGS (6)
  1. PROZAC [Concomitant]
     Dates: start: 20050101
  2. NORCO [Concomitant]
     Dosage: NORCO 51325, ONE TO TWO, FOUR TIMES A DAY
     Route: 048
  3. YASMIN [Suspect]
     Indication: PAIN
     Route: 048
     Dates: start: 20060701, end: 20061201
  4. TOPAMAX [Concomitant]
     Dates: start: 20061201
  5. TOPAMAX [Concomitant]
     Indication: BULIMIA NERVOSA
     Dates: start: 20060901, end: 20061201
  6. YAZ [Suspect]
     Indication: VOMITING
     Route: 048
     Dates: start: 20060901, end: 20061201

REACTIONS (13)
  - NAUSEA [None]
  - VOMITING [None]
  - CHILLS [None]
  - HAEMATEMESIS [None]
  - PHOTOPHOBIA [None]
  - INTRACRANIAL VENOUS SINUS THROMBOSIS [None]
  - ABDOMINAL PAIN [None]
  - PAIN [None]
  - NECK PAIN [None]
  - DEHYDRATION [None]
  - PYREXIA [None]
  - HEADACHE [None]
  - DIARRHOEA [None]
